FAERS Safety Report 16023548 (Version 2)
Quarter: 2019Q1

REPORT INFORMATION
  Report Type: Report from Study
  Country: IR (occurrence: IR)
  Receive Date: 20190301
  Receipt Date: 20190308
  Transmission Date: 20190418
  Serious: Yes (Congenital Anomaly)
  Sender: FDA-Public Use
  Company Number: IR-EMD SERONO-9075385

PATIENT
  Age: 22 Year
  Sex: Female
  Weight: 80 kg

DRUGS (2)
  1. FLUOXETINE [Concomitant]
     Active Substance: FLUOXETINE HYDROCHLORIDE
     Indication: DEPRESSION
     Route: 048
     Dates: start: 20180522, end: 20181211
  2. REBIF [Suspect]
     Active Substance: INTERFERON BETA-1A
     Indication: RELAPSING-REMITTING MULTIPLE SCLEROSIS
     Dates: start: 20170913, end: 20181210

REACTIONS (3)
  - Complication of pregnancy [Recovered/Resolved]
  - Anembryonic gestation [Recovered/Resolved]
  - Exposure during pregnancy [Recovered/Resolved]

NARRATIVE: CASE EVENT DATE: 20180119
